FAERS Safety Report 5133266-3 (Version None)
Quarter: 2006Q4

REPORT INFORMATION
  Report Type: 
  Country: None (occurrence: None)
  Receive Date: 20060930
  Receipt Date: 20050718
  Transmission Date: 20070319
  Serious: No
  Sender: FDA-Public Use
  Company Number: 05H-163-0301118-00

PATIENT

DRUGS (1)
  1. VANCOMYCIN HCL [Suspect]
     Indication: INFECTION
     Dosage: 1 GM, ONCE, INTRAVENOUS
     Route: 042
     Dates: start: 20050713, end: 20050713

REACTIONS (1)
  - ANAPHYLACTIC REACTION [None]
